FAERS Safety Report 4597044-6 (Version None)
Quarter: 2005Q1

REPORT INFORMATION
  Report Type: 
  Country: None (occurrence: None)
  Receive Date: 20050301
  Receipt Date: 20050215
  Transmission Date: 20050727
  Serious: Yes (Death, Hospitalization)
  Sender: FDA-Public Use
  Company Number: 2005S1000572

PATIENT
  Age: 67 Year
  Sex: Male

DRUGS (20)
  1. CLOZAPINE [Suspect]
     Indication: DEMENTIA
     Dosage: 50MG, QAM, ORAL
     Route: 048
     Dates: start: 20041203
  2. CLOZAPINE [Suspect]
     Indication: DEMENTIA
     Dosage: 100MG QAM AND 200MG HS, ORAL
     Route: 048
     Dates: start: 20041203
  3. SENNOSIDES [Concomitant]
  4. ZOLPIDEM TARTRATE [Concomitant]
  5. TRIAMCINOLONE ACETONIDE [Concomitant]
  6. CETIRIZINE HCL [Concomitant]
  7. DIPHENHYDRAMINE HCL [Concomitant]
  8. HYDROCORTISONE [Concomitant]
  9. FUROSEMIDE [Concomitant]
  10. PERPHERAZINE [Concomitant]
  11. VISCOUS LIDOCAINE/DIPHENHYDRAMINE/ALUMINUM/MAGNESIUM HYDROXIDE [Concomitant]
  12. ALUMINUM/MAGNESIUM HYDROXIDE [Concomitant]
  13. TERBINIFINE [Concomitant]
  14. PANTOPRAZOLE [Concomitant]
  15. GATIFLOXACIN [Concomitant]
  16. ACETAMINOPHEN [Concomitant]
  17. TRAZODONE HCL [Concomitant]
  18. TAMSULOSIN [Concomitant]
  19. DICLOFENAC [Concomitant]
  20. BACLOFEN [Concomitant]

REACTIONS (2)
  - AGRANULOCYTOSIS [None]
  - JAUNDICE CHOLESTATIC [None]
